FAERS Safety Report 20768253 (Version 1)
Quarter: 2022Q2

REPORT INFORMATION
  Report Type: Spontaneous
  Country: US (occurrence: US)
  Receive Date: 20220429
  Receipt Date: 20220429
  Transmission Date: 20220721
  Serious: No
  Sender: FDA-Public Use
  Company Number: US-MAYNE PHARMA-2022MYN000009

PATIENT
  Age: 59 Year
  Sex: Male

DRUGS (1)
  1. FLUOROURACIL [Suspect]
     Active Substance: FLUOROURACIL
     Indication: Precancerous skin lesion
     Dosage: UNK, QD
     Route: 061
     Dates: start: 20220104

REACTIONS (1)
  - Drug ineffective [Unknown]

NARRATIVE: CASE EVENT DATE: 20220104
